FAERS Safety Report 9919540 (Version 3)
Quarter: 2014Q1

REPORT INFORMATION
  Report Type: Report from Study
  Country: JP (occurrence: JP)
  Receive Date: 20140224
  Receipt Date: 20140321
  Transmission Date: 20141002
  Serious: Yes (Death)
  Sender: FDA-Public Use
  Company Number: JP-ACTELION-A-CH2011-52485

PATIENT
  Age: 75 Year
  Sex: Male
  Weight: 50 kg

DRUGS (9)
  1. TRACLEER [Suspect]
     Indication: PULMONARY ARTERIAL HYPERTENSION
     Dosage: 62.5 MG, BID
     Route: 048
     Dates: start: 20110426, end: 20110506
  2. TRACLEER [Suspect]
     Dosage: 62.5 MG, QD
     Route: 048
     Dates: start: 20110507, end: 20110513
  3. BIAPENEM [Suspect]
     Indication: PROPHYLAXIS
     Dosage: 0.6 G, QD
     Route: 042
     Dates: start: 20110413, end: 20110426
  4. VANCOMYCIN HYDROCHLORIDE [Suspect]
     Indication: PROPHYLAXIS
     Dosage: 1 G, UNK
     Route: 042
     Dates: start: 20110413, end: 20110426
  5. DORIPENEM [Suspect]
     Indication: PROPHYLAXIS
     Dosage: 0.5 G, QD
     Route: 042
     Dates: start: 20110430, end: 20110504
  6. MIDAZOLAM [Suspect]
     Indication: SEDATION
     Dosage: 50 MG, QD
     Route: 042
     Dates: start: 20110420, end: 20110429
  7. WARFARIN POTASSIUM [Concomitant]
  8. DIGOXIN [Concomitant]
  9. OXYGEN [Concomitant]

REACTIONS (6)
  - Post procedural pneumonia [Fatal]
  - Hepatic function abnormal [Not Recovered/Not Resolved]
  - Aspartate aminotransferase increased [Not Recovered/Not Resolved]
  - Alanine aminotransferase increased [Not Recovered/Not Resolved]
  - Blood alkaline phosphatase increased [Not Recovered/Not Resolved]
  - Pneumothorax [Fatal]
